FAERS Safety Report 5763548-3 (Version None)
Quarter: 2008Q2

REPORT INFORMATION
  Report Type: 
  Country: None (occurrence: None)
  Receive Date: 20080610
  Receipt Date: 20080529
  Transmission Date: 20081010
  Serious: Yes (Other)
  Sender: FDA-Public Use
  Company Number: US-JNJFOC-20080104986

PATIENT
  Sex: Male
  Weight: 88.45 kg

DRUGS (7)
  1. FENTANYL TRANSDERMAL SYSTEM [Suspect]
     Route: 062
  2. FENTANYL TRANSDERMAL SYSTEM [Suspect]
     Route: 062
  3. FENTANYL TRANSDERMAL SYSTEM [Suspect]
     Dosage: 25UG/HR
     Route: 062
  4. FENTANYL TRANSDERMAL SYSTEM [Suspect]
     Indication: PAIN IN EXTREMITY
     Route: 062
  5. ZOLOFT [Concomitant]
     Indication: ANXIETY
     Route: 048
  6. AMITRIPTYLINE HCL [Concomitant]
  7. ATIVAN [Concomitant]

REACTIONS (5)
  - INADEQUATE ANALGESIA [None]
  - INCORRECT DOSE ADMINISTERED [None]
  - INCORRECT DRUG ADMINISTRATION RATE [None]
  - INTERVERTEBRAL DISC PROTRUSION [None]
  - TREATMENT NONCOMPLIANCE [None]
